FAERS Safety Report 6248688-7 (Version None)
Quarter: 2009Q2

REPORT INFORMATION
  Report Type: 
  Country: None (occurrence: None)
  Receive Date: 20090624
  Receipt Date: 20090313
  Transmission Date: 20091009
  Serious: Yes (Hospitalization)
  Sender: FDA-Public Use
  Company Number: US-1168701

PATIENT
  Age: 81 Year
  Sex: Male
  Weight: 81.6475 kg

DRUGS (3)
  1. TIMOLOL MALEATE [Suspect]
     Indication: GLAUCOMA
     Dosage: (BID OPHTHALMIC)
     Route: 047
     Dates: start: 20090128
  2. BENICAR [Concomitant]
  3. XALATAN [Concomitant]

REACTIONS (1)
  - CONDITION AGGRAVATED [None]
